FAERS Safety Report 8488050-X (Version None)
Quarter: 2012Q3

REPORT INFORMATION
  Report Type: 
  Country: None (occurrence: None)
  Receive Date: 20120705
  Receipt Date: 20120626
  Transmission Date: 20120928
  Serious: Yes (Death, Hospitalization)
  Sender: FDA-Public Use
  Company Number: JP-CELGENEUS-087-50794-12063166

PATIENT
  Sex: Male

DRUGS (8)
  1. VIDAZA [Suspect]
     Dosage: 100 MILLIGRAM
     Route: 041
     Dates: start: 20120410
  2. DECADRON [Concomitant]
     Route: 065
     Dates: start: 20120403, end: 20120409
  3. TELEMINSOFT [Concomitant]
     Route: 065
     Dates: start: 20120212
  4. ITRACONAZOLE [Concomitant]
     Route: 065
     Dates: start: 20120417, end: 20120417
  5. DECADRON [Concomitant]
     Dates: start: 20120207, end: 20120213
  6. MAGMITT [Concomitant]
     Route: 065
     Dates: start: 20120209
  7. GRANISETRON [Concomitant]
     Route: 065
     Dates: start: 20120403, end: 20120409
  8. ALOSENN [Concomitant]
     Route: 065
     Dates: start: 20120220, end: 20120221

REACTIONS (2)
  - PNEUMONIA [None]
  - RENAL FAILURE [None]
